FAERS Safety Report 13760051 (Version 3)
Quarter: 2017Q3

REPORT INFORMATION
  Report Type: Report from Study
  Country: PL (occurrence: PL)
  Receive Date: 20170717
  Receipt Date: 20170911
  Transmission Date: 20171127
  Serious: Yes (Hospitalization, Disabling, Other)
  Sender: FDA-Public Use
  Company Number: PHHY2017PL103814

PATIENT
  Age: 69 Year
  Sex: Female
  Weight: 86 kg

DRUGS (20)
  1. TASIGNA [Suspect]
     Active Substance: NILOTINIB
     Indication: CHRONIC MYELOID LEUKAEMIA
     Dosage: 800 MG, UNK
     Route: 048
     Dates: start: 200906
  2. XANAX [Concomitant]
     Active Substance: ALPRAZOLAM
     Indication: PRODUCT USED FOR UNKNOWN INDICATION
     Dosage: 2X HALF
     Route: 065
  3. MILURIT [Concomitant]
     Active Substance: ALLOPURINOL
     Indication: PRODUCT USED FOR UNKNOWN INDICATION
     Dosage: 1-0-0
     Route: 065
  4. DECILOSAL [Concomitant]
     Active Substance: CILOSTAZOL
     Indication: PRODUCT USED FOR UNKNOWN INDICATION
     Dosage: 1-0-0
     Route: 065
  5. VIVACE [Concomitant]
     Active Substance: RAMIPRIL
     Indication: PRODUCT USED FOR UNKNOWN INDICATION
     Dosage: 1-0-0
     Route: 065
  6. POTASSIUM [Concomitant]
     Active Substance: POTASSIUM
     Indication: PRODUCT USED FOR UNKNOWN INDICATION
     Dosage: 1 PACKET, 60 TABLETS, D.5 2 X 1
  7. TASIGNA [Suspect]
     Active Substance: NILOTINIB
     Dosage: UNK UNK, BID
     Route: 048
  8. LACIDOFIL [Concomitant]
     Active Substance: LACTOBACILLUS ACIDOPHILUS\LACTOBACILLUS RHAMNOSUS
     Indication: PRODUCT USED FOR UNKNOWN INDICATION
     Route: 065
  9. ROSUCARD [Concomitant]
     Active Substance: ROSUVASTATIN CALCIUM
     Indication: PRODUCT USED FOR UNKNOWN INDICATION
     Dosage: 0-0-1
     Route: 065
  10. ESPIRO [Concomitant]
     Indication: PRODUCT USED FOR UNKNOWN INDICATION
     Dosage: 1/2-0-0
     Route: 065
  11. KALIPOZ [Concomitant]
     Active Substance: POTASSIUM CHLORIDE
     Indication: PRODUCT USED FOR UNKNOWN INDICATION
     Dosage: 2X1
     Route: 065
  12. ALPRAZOLAM. [Concomitant]
     Active Substance: ALPRAZOLAM
     Indication: PRODUCT USED FOR UNKNOWN INDICATION
     Dosage: 2X1/2
     Route: 065
  13. CONTROLOC [Concomitant]
     Active Substance: PANTOPRAZOLE SODIUM
     Indication: PRODUCT USED FOR UNKNOWN INDICATION
     Dosage: 1-0-0
     Route: 065
  14. POLFILIN [Concomitant]
     Active Substance: PENTOXIFYLLINE
     Indication: PRODUCT USED FOR UNKNOWN INDICATION
     Dosage: 1-0-0
     Route: 065
  15. BISOCARD [Concomitant]
     Active Substance: BISOPROLOL
     Indication: PRODUCT USED FOR UNKNOWN INDICATION
     Dosage: 1-0-0
     Route: 065
  16. FRAXIPARIN [Concomitant]
     Active Substance: NADROPARIN CALCIUM
     Indication: PRODUCT USED FOR UNKNOWN INDICATION
     Route: 065
  17. AUGMENTIN [Concomitant]
     Active Substance: AMOXICILLIN\CLAVULANATE POTASSIUM
     Indication: PRODUCT USED FOR UNKNOWN INDICATION
     Route: 042
  18. TORAMIDE [Concomitant]
     Indication: PRODUCT USED FOR UNKNOWN INDICATION
     Dosage: 1-0-0
     Route: 065
  19. GABAPENTIN. [Concomitant]
     Active Substance: GABAPENTIN
     Indication: PRODUCT USED FOR UNKNOWN INDICATION
     Dosage: 3X1 AND GRADUALLY STOP TAKING
     Route: 065
  20. POLOCARD [Concomitant]
     Active Substance: ASPIRIN
     Indication: PRODUCT USED FOR UNKNOWN INDICATION
     Dosage: 1-0-0
     Route: 065

REACTIONS (33)
  - Headache [Recovering/Resolving]
  - Monocyte count increased [Unknown]
  - Kyphosis [Unknown]
  - Intervertebral disc space narrowing [Unknown]
  - Pericardial disease [Unknown]
  - Right ventricular systolic pressure increased [Unknown]
  - Red cell distribution width increased [Unknown]
  - Lymphocyte count increased [Unknown]
  - Spinal flattening [Unknown]
  - Pallor [Unknown]
  - Aspartate aminotransferase increased [Unknown]
  - Blindness unilateral [Recovering/Resolving]
  - Embolism [Unknown]
  - Mean platelet volume increased [Unknown]
  - International normalised ratio increased [Unknown]
  - Temporal arteritis [Unknown]
  - Left atrial enlargement [Unknown]
  - Red blood cell count decreased [Recovered/Resolved]
  - Neutrophil count increased [Unknown]
  - Blood creatinine increased [Unknown]
  - Muscular weakness [Unknown]
  - Red blood cell sedimentation rate increased [Unknown]
  - Amblyopia [Recovering/Resolving]
  - White blood cell count increased [Unknown]
  - Haematocrit decreased [Recovered/Resolved]
  - Visual field defect [Unknown]
  - Eosinophil count decreased [Unknown]
  - Visual impairment [Unknown]
  - Carotid artery occlusion [Unknown]
  - Spinal osteoarthritis [Unknown]
  - Rhinitis atrophic [Unknown]
  - Left ventricular hypertrophy [Unknown]
  - Haemoglobin decreased [Unknown]

NARRATIVE: CASE EVENT DATE: 20170701
